FAERS Safety Report 4777120-5 (Version None)
Quarter: 2005Q3

REPORT INFORMATION
  Report Type: 
  Country: None (occurrence: None)
  Receive Date: 20050921
  Receipt Date: 20050908
  Transmission Date: 20060218
  Serious: Yes (Death, Hospitalization)
  Sender: FDA-Public Use
  Company Number: 217606

PATIENT
  Age: 64 Year
  Sex: Male
  Weight: 99.8 kg

DRUGS (7)
  1. AVASTIN [Suspect]
     Indication: COLORECTAL CANCER
     Dosage: 5 MG/KG, Q2W,
     Dates: start: 20050628, end: 20050629
  2. METHADONE HCL [Concomitant]
  3. DILAUDID [Concomitant]
  4. DURAGESIC-100 [Concomitant]
  5. FLUOROURACIL [Concomitant]
  6. LEUCOVORIN CALCIUM [Concomitant]
  7. OXALIPLATIN (OXALIPLATIN) [Concomitant]

REACTIONS (3)
  - ANGINA PECTORIS [None]
  - CARDIAC ARREST [None]
  - CHEST PAIN [None]
